FAERS Safety Report 16175649 (Version 4)
Quarter: 2019Q2

REPORT INFORMATION
  Report Type: Spontaneous
  Country: CA (occurrence: CA)
  Receive Date: 20190409
  Receipt Date: 20190527
  Transmission Date: 20190711
  Serious: Yes (Hospitalization, Other)
  Sender: FDA-Public Use
  Company Number: CA-PFIZER INC-2018244706

PATIENT
  Age: 68 Year
  Sex: Female
  Weight: 60 kg

DRUGS (10)
  1. CALCIUM [Concomitant]
     Active Substance: CALCIUM
     Dosage: 500 MG (1 TAB), 2X/DAY
  2. MAGNESIUM [Concomitant]
     Active Substance: MAGNESIUM
     Dosage: UNK, AS NEEDED
  3. IBRANCE [Suspect]
     Active Substance: PALBOCICLIB
     Indication: BREAST CANCER METASTATIC
     Dosage: 125 MG, CYCLIC (ONCE DAILY, FOR 21 DAYS AND OFF FOR 7 DAYS)
     Route: 048
     Dates: start: 20180808
  4. IBRANCE [Suspect]
     Active Substance: PALBOCICLIB
     Dosage: 75 MG, CYCLIC (DAILY, 21 DAYS/28 DAYS)
     Route: 048
  5. LETROZOLE. [Concomitant]
     Active Substance: LETROZOLE
     Dosage: UNK
  6. FASLODEX [Concomitant]
     Active Substance: FULVESTRANT
     Indication: METASTATIC NEOPLASM
     Dosage: UNK
     Dates: start: 20170523
  7. IBRANCE [Suspect]
     Active Substance: PALBOCICLIB
     Dosage: 100 MG, CYCLIC (ONCE DAILY, FOR 21 DAYS AND OFF FOR 7 DAYS)
     Route: 048
     Dates: end: 20190320
  8. ZOMETA LIVI [Concomitant]
     Dosage: UNK, CYCLIC (EVERY (Q) 28 DAYS)
     Route: 042
  9. FULVESTRANT. [Concomitant]
     Active Substance: FULVESTRANT
     Indication: BREAST CANCER METASTATIC
     Dosage: 250 MG, CYCLIC (INTO EACH BUTTOCK X1 EVERY 4 WEEKS)
     Route: 030
     Dates: start: 20180910
  10. VITAMIN D NOS [Concomitant]
     Active Substance: VITAMIN D NOS
     Dosage: 2 DF, 1X/DAY

REACTIONS (11)
  - Body surface area decreased [Unknown]
  - Neutropenia [Unknown]
  - Renal impairment [Not Recovered/Not Resolved]
  - Pain [Recovered/Resolved]
  - Haemoglobin decreased [Not Recovered/Not Resolved]
  - Asthenia [Not Recovered/Not Resolved]
  - Full blood count decreased [Unknown]
  - Malaise [Unknown]
  - Fatigue [Not Recovered/Not Resolved]
  - Weight decreased [Unknown]
  - Abdominal pain [Recovered/Resolved]

NARRATIVE: CASE EVENT DATE: 2018
